FAERS Safety Report 8320853-4 (Version None)
Quarter: 2012Q2

REPORT INFORMATION
  Report Type: 
  Country: None (occurrence: None)
  Receive Date: 20120430
  Receipt Date: 20120420
  Transmission Date: 20120825
  Serious: Yes (Hospitalization, Other)
  Sender: FDA-Public Use
  Company Number: PHHY2011JP55862

PATIENT
  Sex: Female
  Weight: 77 kg

DRUGS (12)
  1. TEGRETOL [Suspect]
     Indication: MANIA
     Dosage: 300 MG, DAILY (100 MG THREE TIMES DAILY)
     Route: 048
     Dates: start: 20100315, end: 20100329
  2. BISACODYL [Suspect]
     Indication: CONSTIPATION
     Dosage: UNK UKN, UNK
     Dates: start: 20100326, end: 20100326
  3. RISPERIDONE [Suspect]
     Indication: INSOMNIA
     Dosage: UNK UKN, UNK
     Route: 048
     Dates: start: 20100312, end: 20100312
  4. ZOLOFT [Suspect]
     Indication: DEPRESSION
     Dosage: 50 MG, DAILY
     Route: 048
     Dates: start: 20100310
  5. ROHYPNOL [Suspect]
     Indication: INSOMNIA
     Dosage: 2 MG, DAILY
     Route: 048
     Dates: start: 20100310, end: 20100331
  6. NICHOLASE [Suspect]
     Indication: UPPER RESPIRATORY TRACT INFLAMMATION
     Dosage: 30 MG, DAILY
     Route: 048
     Dates: start: 20100311, end: 20100315
  7. NICHOLASE [Suspect]
     Dosage: 30 MG, DAILY
     Route: 048
     Dates: start: 20100329, end: 20100331
  8. CLARITHROMYCIN [Suspect]
     Indication: UPPER RESPIRATORY TRACT INFLAMMATION
     Dosage: 400 MG, DAILY
     Route: 048
     Dates: start: 20100311, end: 20100315
  9. SENNOSIDE [Concomitant]
     Indication: CONSTIPATION
     Dosage: UNK UKN, UNK
     Dates: start: 20100326, end: 20100326
  10. ORADOL [Suspect]
     Indication: PHARYNGITIS
     Dosage: UNK UKN, UNK
     Dates: start: 20100311, end: 20100311
  11. BITSAN [Concomitant]
     Indication: DYSPEPSIA
     Dosage: UNK UKN, ONCE/SINGLE
     Dates: start: 20100326
  12. CLARITHROMYCIN [Suspect]
     Dosage: 400 MG, DAILY
     Route: 048
     Dates: start: 20100329, end: 20100329

REACTIONS (9)
  - BLOOD ALKALINE PHOSPHATASE INCREASED [None]
  - HYPERTHERMIA [None]
  - URINARY TRACT INFECTION [None]
  - GAMMA-GLUTAMYLTRANSFERASE INCREASED [None]
  - HEADACHE [None]
  - BLOOD LACTATE DEHYDROGENASE INCREASED [None]
  - C-REACTIVE PROTEIN INCREASED [None]
  - ALANINE AMINOTRANSFERASE INCREASED [None]
  - WHITE BLOOD CELL COUNT DECREASED [None]
